FAERS Safety Report 25728808 (Version 3)
Quarter: 2025Q4

REPORT INFORMATION
  Report Type: Spontaneous
  Country: US (occurrence: US)
  Receive Date: 20250826
  Receipt Date: 20251031
  Transmission Date: 20260117
  Serious: No
  Sender: NEUROCRINE BIOSCIENCES
  Company Number: US-NEUROCRINE BIOSCIENCES INC.-2025NBI10729

PATIENT
  Age: 7 Year
  Sex: Male

DRUGS (3)
  1. CRENESSITY [Suspect]
     Active Substance: CRINECERFONT
     Indication: Adrenogenital syndrome
     Dosage: 50 MILLIGRAM, UNKNOWN
     Route: 065
     Dates: start: 20250725
  2. HYDROCORTISONE [Concomitant]
     Active Substance: HYDROCORTISONE
     Dosage: 5 MILLIGRAM, TID
     Route: 048
  3. HYDROCORTISONE [Concomitant]
     Active Substance: HYDROCORTISONE
     Dosage: 12.5 MILLIGRAM (5MG IN THE MORNING (AM), 5 MG AT 2PM AND 2.5 MG AT PM)
     Dates: start: 202510

REACTIONS (5)
  - Abdominal discomfort [Recovered/Resolved]
  - Temperature intolerance [Recovered/Resolved]
  - Nausea [Not Recovered/Not Resolved]
  - Headache [Recovering/Resolving]
  - Abdominal pain [Recovered/Resolved]

NARRATIVE: CASE EVENT DATE: 20250802
